FAERS Safety Report 25686644 (Version 1)
Quarter: 2025Q3

REPORT INFORMATION
  Report Type: Spontaneous
  Country: US (occurrence: US)
  Receive Date: 20250816
  Receipt Date: 20250816
  Transmission Date: 20251020
  Serious: No
  Sender: SANOFI AVENTIS
  Company Number: US-SANOFI-02622175

PATIENT
  Age: 87 Year
  Sex: Female

DRUGS (3)
  1. DUPIXENT [Suspect]
     Active Substance: DUPILUMAB
     Indication: Pemphigoid
  2. PREDNISONE [Concomitant]
     Active Substance: PREDNISONE
  3. DAPSONE [Concomitant]
     Active Substance: DAPSONE

REACTIONS (2)
  - Gait disturbance [Unknown]
  - Arthralgia [Unknown]
